FAERS Safety Report 15734651 (Version 1)
Quarter: 2018Q4

REPORT INFORMATION
  Report Type: Spontaneous
  Country: KW (occurrence: KW)
  Receive Date: 20181218
  Receipt Date: 20181218
  Transmission Date: 20190205
  Serious: Yes (Other)
  Sender: FDA-Public Use
  Company Number: KW-PURDUE PHARMA-CAN-2018-0009426

PATIENT
  Age: 16 Year
  Sex: Female

DRUGS (2)
  1. NON-PMN METHYLPHENIDATE HYDROCHLORIDE [Suspect]
     Active Substance: METHYLPHENIDATE HYDROCHLORIDE
     Indication: COGNITIVE DISORDER
  2. NON-PMN METHYLPHENIDATE HYDROCHLORIDE [Suspect]
     Active Substance: METHYLPHENIDATE HYDROCHLORIDE
     Indication: DISINHIBITION
     Dosage: 15 MG, DAILY
     Route: 065

REACTIONS (2)
  - Insomnia [Unknown]
  - Dysphoria [Unknown]
